FAERS Safety Report 20677305 (Version 2)
Quarter: 2022Q2

REPORT INFORMATION
  Report Type: Report from Study
  Country: GB (occurrence: GB)
  Receive Date: 20220406
  Receipt Date: 20220516
  Transmission Date: 20220721
  Serious: Yes (Other)
  Sender: FDA-Public Use
  Company Number: GB-SUN PHARMACEUTICAL INDUSTRIES LTD-2022R1-332197

PATIENT

DRUGS (3)
  1. CARBOPLATIN [Suspect]
     Active Substance: CARBOPLATIN
     Indication: Chemotherapy
     Dosage: UNK (4 CYCLES)
     Route: 065
  2. DOXORUBICIN [Suspect]
     Active Substance: DOXORUBICIN
     Indication: Chemotherapy
     Dosage: UNK (4 CYCLES)
     Route: 065
  3. CYCLOPHOSPHAMIDE [Suspect]
     Active Substance: CYCLOPHOSPHAMIDE
     Indication: Chemotherapy
     Dosage: UNK (4 CYCLES)
     Route: 065

REACTIONS (3)
  - Neutropenia [Unknown]
  - Anaemia [Unknown]
  - Thrombocytopenia [Unknown]
